FAERS Safety Report 4582086-7 (Version None)
Quarter: 2005Q1

REPORT INFORMATION
  Report Type: 
  Country: None (occurrence: None)
  Receive Date: 20050119
  Receipt Date: 20040628
  Transmission Date: 20050727
  Serious: Yes (Other)
  Sender: FDA-Public Use
  Company Number: A03200402083

PATIENT
  Age: 77 Year
  Sex: Male

DRUGS (5)
  1. PLAVIX [Suspect]
     Dosage: ORAL
     Route: 048
  2. TNKASE [Suspect]
  3. HEPARIN [Suspect]
  4. ACETYLSALICYLIC ACID SRT [Suspect]
  5. TICLID [Suspect]

REACTIONS (3)
  - HAEMATOMA [None]
  - HAEMORRHAGE CORONARY ARTERY [None]
  - POST PROCEDURAL HAEMATOMA [None]
